FAERS Safety Report 24654986 (Version 1)
Quarter: 2024Q4

REPORT INFORMATION
  Report Type: Spontaneous
  Country: US (occurrence: US)
  Receive Date: 20241122
  Receipt Date: 20241122
  Transmission Date: 20250114
  Serious: No
  Sender: BIOMARIN
  Company Number: US-BIOMARINAP-US-2024-162054

PATIENT

DRUGS (9)
  1. PALYNZIQ [Suspect]
     Active Substance: PEGVALIASE-PQPZ
     Indication: Phenylketonuria
     Dosage: 40 MILLIGRAM, QD
     Route: 058
  2. PALYNZIQ [Suspect]
     Active Substance: PEGVALIASE-PQPZ
     Dosage: UNK
     Route: 058
     Dates: start: 201909
  3. DULOXETINE HYDROCHLORIDE [Concomitant]
     Active Substance: DULOXETINE HYDROCHLORIDE
     Indication: Product used for unknown indication
     Dosage: 30 MILLIGRAM
  4. FAMOTIDINE [Concomitant]
     Active Substance: FAMOTIDINE
     Indication: Product used for unknown indication
     Dosage: 20 MILLIGRAM
  5. CYANOCOBALAMIN [Concomitant]
     Active Substance: CYANOCOBALAMIN
     Indication: Product used for unknown indication
     Dosage: 1000 UNK
  6. WEGOVY [Concomitant]
     Active Substance: SEMAGLUTIDE
     Indication: Product used for unknown indication
     Dosage: 0.25 MILLIGRAM
  7. ZYRTEC [Concomitant]
     Active Substance: CETIRIZINE HYDROCHLORIDE
     Indication: Product used for unknown indication
     Dosage: 10 MILLIGRAM
  8. IRON\VITAMIN B [Concomitant]
     Active Substance: IRON\VITAMIN B
     Indication: Product used for unknown indication
  9. IRON\VITAMIN B [Concomitant]
     Active Substance: IRON\VITAMIN B
     Indication: Product used for unknown indication

REACTIONS (1)
  - Nasopharyngitis [Unknown]
